FAERS Safety Report 18214185 (Version 1)
Quarter: 2020Q3

REPORT INFORMATION
  Report Type: Spontaneous
  Country: TR (occurrence: TR)
  Receive Date: 20200831
  Receipt Date: 20200831
  Transmission Date: 20201103
  Serious: Yes (Other)
  Sender: FDA-Public Use
  Company Number: TR-IPSEN BIOPHARMACEUTICALS, INC.-2020-15727

PATIENT
  Age: 41 Year
  Sex: Female

DRUGS (1)
  1. BOTULINUM TOXIN TYPE A [Suspect]
     Active Substance: BOTULINUM TOXIN TYPE A
     Indication: SKIN WRINKLING
     Dosage: DOSE NOT REPORTED
     Route: 065

REACTIONS (5)
  - Retinal degeneration [Unknown]
  - Blindness [Unknown]
  - Papilloedema [Unknown]
  - Retinal artery occlusion [Unknown]
  - Retinal ischaemia [Unknown]
